FAERS Safety Report 13960821 (Version 1)
Quarter: 2017Q3

REPORT INFORMATION
  Report Type: Spontaneous
  Country: US (occurrence: US)
  Receive Date: 20170912
  Receipt Date: 20170912
  Transmission Date: 20171128
  Serious: Yes (Other)
  Sender: FDA-Public Use
  Company Number: US-BRACCO-2017US04125

PATIENT
  Sex: Female

DRUGS (4)
  1. MAGNEVIST [Suspect]
     Active Substance: GADOPENTETATE DIMEGLUMINE
     Indication: ANGIOGRAM
     Dosage: 20 ML, UNK
     Dates: start: 200901, end: 200901
  2. OMNISCAN [Suspect]
     Active Substance: GADODIAMIDE
     Indication: ANGIOGRAM
  3. GADAVIST [Suspect]
     Active Substance: GADOBUTROL
     Indication: DIAGNOSTIC PROCEDURE
  4. MULTIHANCE [Suspect]
     Active Substance: GADOBENATE DIMEGLUMINE
     Indication: DIAGNOSTIC PROCEDURE
     Dosage: UNK, SINGLE

REACTIONS (42)
  - Urine analysis abnormal [Unknown]
  - Torticollis [Unknown]
  - Nausea [Unknown]
  - Haematuria [Unknown]
  - Computerised tomogram abnormal [Unknown]
  - Dry mouth [Unknown]
  - Hypoaesthesia [Unknown]
  - Cough [Unknown]
  - Loss of proprioception [Unknown]
  - Gait disturbance [Unknown]
  - Fall [Unknown]
  - Abdominal discomfort [Unknown]
  - Insomnia [Unknown]
  - Depression [Unknown]
  - Pelvic pain [Unknown]
  - Visual impairment [Unknown]
  - Vertigo [Unknown]
  - Ear disorder [Unknown]
  - Dysgeusia [Unknown]
  - Bone pain [Unknown]
  - Arthralgia [Unknown]
  - Myalgia [Unknown]
  - Dyspepsia [Unknown]
  - Anxiety [Unknown]
  - Deafness [Unknown]
  - Dry eye [Unknown]
  - Muscle spasms [Unknown]
  - Muscle twitching [Unknown]
  - Gadolinium deposition disease [Unknown]
  - Cognitive disorder [Unknown]
  - Headache [Unknown]
  - Chest pain [Unknown]
  - Back pain [Unknown]
  - Disturbance in attention [Unknown]
  - Nystagmus [Unknown]
  - Fine motor skill dysfunction [Unknown]
  - Sensory disturbance [Unknown]
  - Body temperature fluctuation [Unknown]
  - Vitreous floaters [Unknown]
  - Throat irritation [Unknown]
  - Palpitations [Unknown]
  - Irritability [Unknown]

NARRATIVE: CASE EVENT DATE: 20151103
